FAERS Safety Report 11755968 (Version 1)
Quarter: 2015Q4

REPORT INFORMATION
  Report Type: Spontaneous
  Country: US (occurrence: US)
  Receive Date: 20151119
  Receipt Date: 20151119
  Transmission Date: 20160304
  Serious: No
  Sender: FDA-Public Use
  Company Number: US-ALLERGAN-1507005US

PATIENT
  Sex: Female
  Weight: 62.13 kg

DRUGS (1)
  1. ALPHAGAN P [Suspect]
     Active Substance: BRIMONIDINE TARTRATE
     Indication: GLAUCOMA
     Dosage: 2 GTT, BID
     Route: 047
     Dates: start: 201410, end: 20150409

REACTIONS (5)
  - Vision blurred [Recovered/Resolved]
  - Ocular hyperaemia [Recovered/Resolved]
  - Foreign body sensation in eyes [Recovered/Resolved]
  - Photophobia [Recovered/Resolved]
  - Lacrimation increased [Recovered/Resolved]
